FAERS Safety Report 6239093-8 (Version None)
Quarter: 2009Q2

REPORT INFORMATION
  Report Type: 
  Country: None (occurrence: None)
  Receive Date: 20090622
  Receipt Date: 20090618
  Transmission Date: 20091009
  Serious: Yes (Death, Disabling, Other)
  Sender: FDA-Public Use
  Company Number: PHHY2009NZ18582

PATIENT
  Sex: Male

DRUGS (12)
  1. CLOZARIL [Suspect]
     Indication: SCHIZOPHRENIA
     Dosage: 100 MG MANE, 125 MG NOCTE
     Route: 048
     Dates: start: 19970115
  2. CLOZARIL [Suspect]
     Dosage: 125 MG MANE, 250 MG NOCTE
  3. INHIBACE ^ANDREU^ [Concomitant]
     Dosage: 0.5 MG DAILY
  4. ASPIRIN [Concomitant]
     Dosage: 100 MG DAILY
  5. BETALOC - SLOW RELEASE [Concomitant]
     Dosage: 47.5 MG DAILY
  6. BEZALIP - SLOW RELEASE [Concomitant]
     Dosage: 400 MG NOCTE
  7. DIGOXIN [Concomitant]
     Dosage: 0.25 MG DAILY
  8. FUROSEMIDE [Concomitant]
     Dosage: 20 MG DAILY
  9. GLICLAZIDE [Concomitant]
     Dosage: 160 MG, BID
  10. LIPEX [Concomitant]
     Dosage: 60 MG DAILY
  11. NITROLINGUAL [Concomitant]
     Dosage: 400 UG, PRN
     Route: 048
  12. SOMAC [Concomitant]
     Dosage: 40 MG DAILY

REACTIONS (1)
  - MYOCARDIAL INFARCTION [None]
